FAERS Safety Report 9264869 (Version 1)
Quarter: 2013Q2

REPORT INFORMATION
  Report Type: Spontaneous
  Country: DE (occurrence: DE)
  Receive Date: 20130501
  Receipt Date: 20130501
  Transmission Date: 20140414
  Serious: Yes (Hospitalization, Other)
  Sender: FDA-Public Use
  Company Number: PHHY2013DE041559

PATIENT
  Sex: Female

DRUGS (2)
  1. DIOVAN [Suspect]
     Indication: HYPERTENSION
     Dosage: 0.5 DF, QD
     Route: 048
     Dates: start: 2002
  2. ASS [Concomitant]
     Dosage: 1 DF, QD

REACTIONS (10)
  - Thrombosis [Unknown]
  - Anaemia [Not Recovered/Not Resolved]
  - Haematocrit abnormal [Not Recovered/Not Resolved]
  - Haemoglobin abnormal [Not Recovered/Not Resolved]
  - Red blood cell abnormality [Not Recovered/Not Resolved]
  - Cardiac disorder [Unknown]
  - Type 2 diabetes mellitus [Not Recovered/Not Resolved]
  - Device leakage [Unknown]
  - Influenza [Recovered/Resolved]
  - Wrong technique in drug usage process [Unknown]
